FAERS Safety Report 24066071 (Version 1)
Quarter: 2024Q3

REPORT INFORMATION
  Report Type: Spontaneous
  Country: CN (occurrence: CN)
  Receive Date: 20240709
  Receipt Date: 20240709
  Transmission Date: 20241017
  Serious: No
  Sender: PFIZER
  Company Number: CN-PFIZER INC-202400204510

PATIENT
  Age: 1 Year
  Sex: Male
  Weight: 8 kg

DRUGS (1)
  1. ZITHROMAX [Suspect]
     Active Substance: AZITHROMYCIN DIHYDRATE
     Dosage: 3X/DAY
     Dates: start: 202402

REACTIONS (2)
  - Inappropriate schedule of product administration [Recovered/Resolved]
  - Infantile vomiting [Recovered/Resolved]

NARRATIVE: CASE EVENT DATE: 20240201
